FAERS Safety Report 8193054-0 (Version None)
Quarter: 2012Q1

REPORT INFORMATION
  Report Type: 
  Country: None (occurrence: None)
  Receive Date: 20120308
  Receipt Date: 20120301
  Transmission Date: 20120608
  Serious: Yes (Life-Threatening)
  Sender: FDA-Public Use
  Company Number: US-COVIDIEN/TYCO HEALTHCARE/MALLINCKRODT-T201200801

PATIENT
  Age: 54 Year
  Sex: Female
  Weight: 77 kg

DRUGS (3)
  1. ETOMIDATE [Suspect]
     Indication: ANAESTHESIA
     Dosage: 16 MG, SINGLE
     Route: 042
  2. FENTANYL CITRATE [Suspect]
     Indication: ANAESTHESIA
     Dosage: 100 MCG, SINGLE
     Route: 042
  3. SUCCINYLCHOLINE CHLORIDE [Suspect]
     Indication: ANAESTHESIA
     Dosage: 120 MG, SINGLE
     Route: 042

REACTIONS (2)
  - BRADYCARDIA [None]
  - CARDIAC ARREST [None]
